FAERS Safety Report 7516824-8 (Version None)
Quarter: 2011Q2

REPORT INFORMATION
  Report Type: 
  Country: None (occurrence: None)
  Receive Date: 20110429
  Receipt Date: 20110317
  Transmission Date: 20111010
  Serious: Yes (Other)
  Sender: FDA-Public Use
  Company Number: SPV1-2011-00191

PATIENT
  Age: 11 Year
  Sex: Male

DRUGS (4)
  1. CLONIDINE [Concomitant]
  2. INTUNIV [Suspect]
     Indication: ATTENTION DEFICIT/HYPERACTIVITY DISORDER
     Dosage: 2 MG, 1X/DAY:QD, ORAL
     Route: 048
  3. DEPAKOTE [Concomitant]
  4. VYVANSE (LISDEXAMPHETAMINE MESILATE) [Concomitant]

REACTIONS (2)
  - INAPPROPRIATE SCHEDULE OF DRUG ADMINISTRATION [None]
  - GRAND MAL CONVULSION [None]
